FAERS Safety Report 24824578 (Version 2)
Quarter: 2025Q2

REPORT INFORMATION
  Report Type: Spontaneous
  Country: US (occurrence: US)
  Receive Date: 20250109
  Receipt Date: 20250519
  Transmission Date: 20250716
  Serious: Yes (Hospitalization)
  Sender: NORDIC PHARMA
  Company Number: US-NORIDC PHARMA, INC-2024US004925

PATIENT

DRUGS (1)
  1. NEOSTIGMINE METHYLSULFATE [Suspect]
     Active Substance: NEOSTIGMINE METHYLSULFATE
     Indication: Ileus
     Route: 058

REACTIONS (2)
  - Wheezing [Unknown]
  - Product use issue [Unknown]
